FAERS Safety Report 8371225-8 (Version None)
Quarter: 2012Q2

REPORT INFORMATION
  Report Type: 
  Country: None (occurrence: None)
  Receive Date: 20120518
  Receipt Date: 20120508
  Transmission Date: 20120825
  Serious: Yes (Hospitalization)
  Sender: FDA-Public Use
  Company Number: JP-ASTRAZENECA-2012SE22125

PATIENT
  Age: 58 Year
  Sex: Female
  Weight: 56 kg

DRUGS (8)
  1. RASILEZ [Concomitant]
     Route: 048
  2. LASIX [Concomitant]
     Route: 048
  3. TENORMIN [Concomitant]
     Route: 048
  4. CANDESARTAN CILEXETIL [Suspect]
     Indication: HYPERTENSION
     Route: 048
     Dates: start: 20041112, end: 20051201
  5. CANDESARTAN CILEXETIL [Suspect]
     Route: 048
     Dates: start: 20051201, end: 20120119
  6. ALLOPURINOL [Concomitant]
     Route: 048
  7. CALCIUM CARBONATE [Concomitant]
     Route: 048
  8. DOXAZOSIN MESYLATE [Concomitant]
     Route: 048

REACTIONS (1)
  - DRUG-INDUCED LIVER INJURY [None]
